FAERS Safety Report 20163982 (Version 1)
Quarter: 2021Q4

REPORT INFORMATION
  Report Type: Report from Study
  Country: KR (occurrence: KR)
  Receive Date: 20211209
  Receipt Date: 20211209
  Transmission Date: 20220303
  Serious: Yes (Death, Life-Threatening, Hospitalization)
  Sender: FDA-Public Use
  Company Number: KR-CELLTRION INC.-2018KR023512

PATIENT

DRUGS (15)
  1. HERZUMA [Suspect]
     Active Substance: TRASTUZUMAB-PKRB
     Indication: Salivary gland cancer
     Dosage: C1D1: 681.6 MG (8MG/KG)
     Route: 042
     Dates: start: 20180920, end: 20180920
  2. HERZUMA [Suspect]
     Active Substance: TRASTUZUMAB-PKRB
     Dosage: C2: (6MG/KG) 511.2MG
     Route: 042
     Dates: start: 20181012, end: 20181012
  3. VALSARTAN [Concomitant]
     Active Substance: VALSARTAN
     Indication: Hypertension
     Dosage: UNK, QD
     Route: 048
  4. ASPIRIN [Concomitant]
     Active Substance: ASPIRIN
     Indication: Hypertension
     Dosage: UNK, QD
     Route: 048
  5. CARVEDILOL [Concomitant]
     Active Substance: CARVEDILOL
     Indication: Hypertension
     Dosage: UNK, BID
     Route: 048
  6. EDOXABAN [Concomitant]
     Active Substance: EDOXABAN
     Indication: Prophylaxis
     Dosage: UNK, QD
     Route: 048
     Dates: start: 20181126
  7. EDOXABAN [Concomitant]
     Active Substance: EDOXABAN
     Indication: Cerebrovascular accident
  8. FUROSEMIDE [Concomitant]
     Active Substance: FUROSEMIDE
     Indication: Hypertension
     Dosage: UNK, QD
     Route: 048
     Dates: start: 20181126
  9. CANDESARTAN [Concomitant]
     Active Substance: CANDESARTAN
     Indication: Hypertension
     Dosage: UNK, QD
     Route: 048
     Dates: start: 20181126
  10. DIGOXIN [Concomitant]
     Active Substance: DIGOXIN
     Indication: Hypertension
     Dosage: UNK, QD
     Route: 048
     Dates: start: 20181218
  11. CETAMADOL [Concomitant]
     Indication: Cancer pain
     Dosage: UNK, TID
     Route: 048
     Dates: start: 20190107
  12. PREGABALIN [Concomitant]
     Active Substance: PREGABALIN
     Indication: Hypoaesthesia
     Dosage: UNK, BID
     Route: 048
  13. ZOLPIDEM [Concomitant]
     Active Substance: ZOLPIDEM TARTRATE
     Indication: Insomnia
     Dosage: UNK, QD
     Route: 048
  14. HYALURONATE [Concomitant]
     Active Substance: HYALURONIC ACID
     Dosage: UNK, PRN
     Route: 047
  15. DOCETAXEL [Concomitant]
     Active Substance: DOCETAXEL
     Dosage: UNK

REACTIONS (4)
  - Disease progression [Fatal]
  - Cerebrovascular accident [Unknown]
  - Sepsis [Recovered/Resolved]
  - Off label use [Unknown]

NARRATIVE: CASE EVENT DATE: 20181021
